FAERS Safety Report 9892303 (Version 1)
Quarter: 2014Q1

REPORT INFORMATION
  Report Type: Spontaneous
  Country: US (occurrence: US)
  Receive Date: 20140212
  Receipt Date: 20140212
  Transmission Date: 20141002
  Serious: No
  Sender: FDA-Public Use
  Company Number: US-MALLINCKRODT-T201305181

PATIENT
  Age: 47 Year
  Sex: Male
  Weight: 139.23 kg

DRUGS (11)
  1. FENTANYL TRANSDERMAL SYSTEM [Suspect]
     Indication: INTERVERTEBRAL DISC PROTRUSION
     Dosage: 100 UG/HR, 1 PATCH Q48H
     Route: 062
  2. DM COUGH [Suspect]
     Dosage: UNK
     Route: 065
     Dates: start: 201312
  3. NORCO [Concomitant]
     Indication: BREAKTHROUGH PAIN
     Dosage: UNK BID
     Route: 048
  4. ACTOPLUS MET [Concomitant]
     Indication: DIABETES MELLITUS
     Dosage: UNK
     Route: 048
  5. LEVEMIR [Concomitant]
     Indication: DIABETES MELLITUS
     Dosage: UNK
     Route: 048
  6. LYRICA [Concomitant]
     Dosage: 200 MG, UNK
     Route: 048
  7. LISINOPRIL [Concomitant]
     Indication: HYPERTENSION
     Dosage: 40 MG, UNK
     Route: 048
  8. ALPRAZOLAM [Concomitant]
     Dosage: 2 MG, UNK
     Route: 048
  9. AMBIEN [Concomitant]
     Dosage: UNK
     Route: 048
  10. AMLODIPINE [Concomitant]
     Indication: HYPERTENSION
     Dosage: 10 MG, UNK
     Route: 048
  11. LIPITOR [Concomitant]
     Dosage: 40 MG, UNK
     Route: 048

REACTIONS (3)
  - Migraine [Not Recovered/Not Resolved]
  - Sinusitis [Unknown]
  - Heart rate increased [Not Recovered/Not Resolved]
